FAERS Safety Report 6553726-8 (Version None)
Quarter: 2010Q1

REPORT INFORMATION
  Report Type: 
  Country: None (occurrence: None)
  Receive Date: 20100125
  Receipt Date: 20100125
  Transmission Date: 20100710
  Serious: No
  Sender: FDA-Public Use
  Company Number: None

PATIENT
  Age: 37 Year
  Sex: Male
  Weight: 88.905 kg

DRUGS (1)
  1. LICO3 LITHIUM CARBONATE [Suspect]
     Indication: BIPOLAR DISORDER
     Dosage: 300 MG. ONCE P.O. TID P.O.
     Route: 048

REACTIONS (2)
  - PRURITUS [None]
  - RASH [None]
